FAERS Safety Report 8601149-X (Version None)
Quarter: 2012Q3

REPORT INFORMATION
  Report Type: 
  Country: None (occurrence: None)
  Receive Date: 20120817
  Receipt Date: 20120813
  Transmission Date: 20120928
  Serious: Yes (Hospitalization, Other)
  Sender: FDA-Public Use
  Company Number: PHEH2012US007506

PATIENT
  Sex: Female
  Weight: 69.751 kg

DRUGS (1)
  1. EXJADE [Suspect]
     Indication: IRON OVERLOAD
     Dosage: 250 MG BID
     Route: 048
     Dates: start: 20110718

REACTIONS (6)
  - PANCYTOPENIA [None]
  - FEBRILE NEUTROPENIA [None]
  - LOCALISED INFECTION [None]
  - CLOSTRIDIAL INFECTION [None]
  - HERPES ZOSTER [None]
  - PLEURAL EFFUSION [None]
